FAERS Safety Report 13051862 (Version 1)
Quarter: 2016Q4

REPORT INFORMATION
  Report Type: Spontaneous
  Country: ES (occurrence: ES)
  Receive Date: 20161221
  Receipt Date: 20161221
  Transmission Date: 20170207
  Serious: Yes (Other)
  Sender: FDA-Public Use
  Company Number: ES-ALLERGAN-1681765US

PATIENT
  Sex: Female

DRUGS (1)
  1. ESCITALOPRAM OXALATE - BP [Suspect]
     Active Substance: ESCITALOPRAM OXALATE
     Indication: DEPRESSION
     Dosage: 10 MG, UNK
     Route: 048
     Dates: start: 2014

REACTIONS (7)
  - Irritability [Unknown]
  - Wrong technique in product usage process [Unknown]
  - Disorientation [Unknown]
  - Thinking abnormal [Unknown]
  - Dizziness [Unknown]
  - Nervousness [Unknown]
  - Depressed mood [Unknown]
